FAERS Safety Report 23667893 (Version 2)
Quarter: 2024Q2

REPORT INFORMATION
  Report Type: Spontaneous
  Country: US (occurrence: US)
  Receive Date: 20240325
  Receipt Date: 20240415
  Transmission Date: 20240715
  Serious: Yes (Other)
  Sender: FDA-Public Use
  Company Number: US-BAYER-2024A037860

PATIENT
  Age: 44 Year
  Sex: Female
  Weight: 74.376 kg

DRUGS (1)
  1. MIRENA [Suspect]
     Active Substance: LEVONORGESTREL
     Indication: Intrauterine contraception
     Dosage: 20?G/DAY
     Route: 015
     Dates: start: 20180322

REACTIONS (4)
  - Embedded device [Not Recovered/Not Resolved]
  - Device breakage [None]
  - Complication of device removal [None]
  - Post procedural discomfort [None]

NARRATIVE: CASE EVENT DATE: 20240229
